FAERS Safety Report 8930399 (Version 1)
Quarter: 2012Q4

REPORT INFORMATION
  Report Type: 
  Country: DK (occurrence: CH)
  Receive Date: 20121128
  Receipt Date: 20121128
  Transmission Date: 20130627
  Serious: Yes (Death)
  Sender: FDA-Public Use
  Company Number: CH-FRI-1000040642

PATIENT
  Sex: Female

DRUGS (9)
  1. ESCITALOPRAM [Suspect]
     Indication: DEPRESSION
     Dosage: 10 mg
     Route: 048
     Dates: end: 20120822
  2. TRAMAL [Suspect]
     Indication: FIBROMYALGIA
     Dosage: 50 mg
     Route: 048
     Dates: start: 20120821, end: 20120821
  3. ANXIOLIT [Suspect]
     Dosage: 15 mg (before sleeping)
     Dates: end: 20120822
  4. LEXOTANIL [Suspect]
     Dosage: 1.5 mg
     Dates: end: 20120822
  5. PARACETAMOL [Concomitant]
     Indication: FIBROMYALGIA
     Dosage: 4000 mg
  6. AMLODIPINE [Concomitant]
     Dosage: 5 mg
  7. ATACAND PLUS [Concomitant]
  8. CALCIMAGON D3 [Concomitant]
  9. IBUPROFEN [Concomitant]
     Indication: FIBROMYALGIA
     Dosage: 800 mg

REACTIONS (3)
  - Cerebrovascular accident [Fatal]
  - Spinal fracture [Fatal]
  - Fall [Fatal]
